FAERS Safety Report 4290211-0 (Version None)
Quarter: 2004Q1

REPORT INFORMATION
  Report Type: 
  Country: None (occurrence: None)
  Receive Date: 20040210
  Receipt Date: 20031124
  Transmission Date: 20041129
  Serious: Yes (Disabling, Other)
  Sender: FDA-Public Use
  Company Number: PHNR2003AU01643

PATIENT
  Age: 60 Year
  Sex: Male

DRUGS (2)
  1. LAMISIL [Suspect]
     Indication: ONYCHOMYCOSIS
     Dosage: 250 MG, QD
     Route: 048
     Dates: start: 20030929, end: 20031109
  2. ALLEGRON [Concomitant]
     Indication: DEPRESSION
     Route: 048

REACTIONS (6)
  - AGEUSIA [None]
  - ANOREXIA [None]
  - ARTHRALGIA [None]
  - CHROMATURIA [None]
  - FATIGUE [None]
  - MYALGIA [None]
